FAERS Safety Report 4411627-5 (Version None)
Quarter: 2004Q3

REPORT INFORMATION
  Report Type: 
  Country: None (occurrence: None)
  Receive Date: 20040728
  Receipt Date: 20040728
  Transmission Date: 20050211
  Serious: Yes (Hospitalization)
  Sender: FDA-Public Use
  Company Number: None

PATIENT
  Age: 45 Year
  Sex: Male
  Weight: 82.1 kg

DRUGS (8)
  1. PEG INTERFERON ALPHA 2B [Suspect]
     Indication: HEPATITIS C
     Dosage: 120 MCG, SUBCUTAN
     Dates: start: 20040301, end: 20040301
  2. SILDENAFIL CITRATE [Concomitant]
  3. PEGINTERFERON ALPHA 2B [Concomitant]
  4. RIBAVIRIN [Concomitant]
  5. HEPATITIS A VACCINE [Concomitant]
  6. HEPATITIS B VACCINE [Concomitant]
  7. RABEPRAZOLE SODIUM [Concomitant]
  8. ALBUTEROL [Concomitant]

REACTIONS (4)
  - ARTHRALGIA [None]
  - NEUTROPENIA [None]
  - PYREXIA [None]
  - THROMBOCYTOPENIA [None]
